FAERS Safety Report 7617796-8 (Version None)
Quarter: 2011Q3

REPORT INFORMATION
  Report Type: 
  Country: None (occurrence: None)
  Receive Date: 20110718
  Receipt Date: 20110708
  Transmission Date: 20111222
  Serious: Yes (Hospitalization, Other)
  Sender: FDA-Public Use
  Company Number: US-BAYER-201021293NA

PATIENT
  Age: 27 Year
  Sex: Female
  Weight: 102.27 kg

DRUGS (12)
  1. PHENYTOIN [Concomitant]
     Dates: start: 20070101, end: 20090101
  2. PROTONIX [Concomitant]
     Dates: start: 20070101, end: 20090101
  3. KEPPRA [Concomitant]
  4. YAZ [Suspect]
     Indication: ORAL CONTRACEPTION
     Dosage: AS USED DOSE: UNK
     Route: 048
     Dates: start: 20060901, end: 20070201
  5. YAZ [Suspect]
     Indication: PREMENSTRUAL SYNDROME
  6. DILANTIN [Concomitant]
  7. IMITREX [Concomitant]
     Dates: start: 20070301
  8. LEXAPRO [Concomitant]
  9. PROTONIX [Concomitant]
  10. ACETAMINOPHEN W/BUTALBITAL [Concomitant]
     Dates: start: 20070301, end: 20070401
  11. DILANTIN [Concomitant]
  12. COLACE [Concomitant]
     Dates: start: 20070101

REACTIONS (16)
  - BALANCE DISORDER [None]
  - CONVULSION [None]
  - HAEMORRHAGIC TRANSFORMATION STROKE [None]
  - CONFUSIONAL STATE [None]
  - APHASIA [None]
  - BRAIN OEDEMA [None]
  - LETHARGY [None]
  - NAUSEA [None]
  - TRANSVERSE SINUS THROMBOSIS [None]
  - VISION BLURRED [None]
  - SPEECH DISORDER [None]
  - HEMIPARESIS [None]
  - HEADACHE [None]
  - PAIN [None]
  - VOMITING [None]
  - DEPRESSION [None]
